FAERS Safety Report 13037442 (Version 4)
Quarter: 2017Q1

REPORT INFORMATION
  Report Type: Spontaneous
  Country: IT (occurrence: IT)
  Receive Date: 20161216
  Receipt Date: 20170126
  Transmission Date: 20170428
  Serious: Yes (Hospitalization)
  Sender: FDA-Public Use
  Company Number: IT-ABBVIE-16P-083-1811170-00

PATIENT
  Age: 94 Year
  Sex: Female
  Weight: 55 kg

DRUGS (1)
  1. MACLADIN [Suspect]
     Active Substance: CLARITHROMYCIN
     Indication: PNEUMONIA
     Route: 048
     Dates: start: 20161104, end: 20161110

REACTIONS (4)
  - Bronchospasm [Recovering/Resolving]
  - Jaundice [Recovering/Resolving]
  - Hypersensitivity [Recovering/Resolving]
  - Hyperferritinaemia [Recovering/Resolving]

NARRATIVE: CASE EVENT DATE: 20161114
